FAERS Safety Report 5730270-9 (Version None)
Quarter: 2008Q2

REPORT INFORMATION
  Report Type: 
  Country: None (occurrence: None)
  Receive Date: 20080505
  Receipt Date: 20080505
  Transmission Date: 20081010
  Serious: No
  Sender: FDA-Public Use
  Company Number: None

PATIENT
  Age: 65 Year
  Sex: Female
  Weight: 86.637 kg

DRUGS (1)
  1. DIGITEK 0.25 MG. BERTEK [Suspect]
     Indication: ATRIAL FIBRILLATION
     Dosage: 0.25 MG ONCE A DAY PO
     Route: 048
     Dates: start: 20000106, end: 20080427

REACTIONS (6)
  - AMNESIA [None]
  - DYSARTHRIA [None]
  - FALL [None]
  - LIMB INJURY [None]
  - LOSS OF CONSCIOUSNESS [None]
  - PHARMACEUTICAL PRODUCT COMPLAINT [None]
